FAERS Safety Report 6932823-9 (Version None)
Quarter: 2010Q3

REPORT INFORMATION
  Report Type: 
  Country: None (occurrence: None)
  Receive Date: 20100813
  Receipt Date: 20100630
  Transmission Date: 20110219
  Serious: No
  Sender: FDA-Public Use
  Company Number: 1000014884

PATIENT
  Age: 46 Year
  Sex: Male

DRUGS (5)
  1. SAVELLA [Suspect]
     Indication: DEPRESSION
     Dosage: 12.5 MG (12.5 MG, 1 IN 1 D), ORAL ; 25 MG (12.5 MG, 2 IN 1 D), ORAL ; 50 MG (25 MG, 2 IN 1 D), ORAL
     Route: 048
     Dates: start: 20100512, end: 20100512
  2. SAVELLA [Suspect]
     Indication: DEPRESSION
     Dosage: 12.5 MG (12.5 MG, 1 IN 1 D), ORAL ; 25 MG (12.5 MG, 2 IN 1 D), ORAL ; 50 MG (25 MG, 2 IN 1 D), ORAL
     Route: 048
     Dates: start: 20100513, end: 20100514
  3. SAVELLA [Suspect]
     Indication: DEPRESSION
     Dosage: 12.5 MG (12.5 MG, 1 IN 1 D), ORAL ; 25 MG (12.5 MG, 2 IN 1 D), ORAL ; 50 MG (25 MG, 2 IN 1 D), ORAL
     Route: 048
     Dates: start: 20100515, end: 20100518
  4. SAVELLA [Suspect]
     Indication: DEPRESSION
     Dosage: 100 MG (50 MG, 2 IN 1 D), ORAL
     Route: 048
     Dates: start: 20100519, end: 20100614
  5. PERCOCET [Concomitant]

REACTIONS (2)
  - DIARRHOEA [None]
  - RASH [None]
